FAERS Safety Report 23685654 (Version 2)
Quarter: 2024Q2

REPORT INFORMATION
  Report Type: Report from Study
  Country: US (occurrence: US)
  Receive Date: 20240329
  Receipt Date: 20240415
  Transmission Date: 20240715
  Serious: No
  Sender: FDA-Public Use
  Company Number: US-AstraZeneca-CH-00592451A

PATIENT
  Age: 71 Year
  Sex: Male

DRUGS (1)
  1. ULTOMIRIS [Suspect]
     Active Substance: RAVULIZUMAB-CWVZ
     Indication: Paroxysmal nocturnal haemoglobinuria
     Dosage: UNK
     Route: 041
     Dates: start: 202001

REACTIONS (3)
  - Haemoglobin decreased [Recovering/Resolving]
  - Fear [Recovered/Resolved]
  - Anxiety [Recovered/Resolved]

NARRATIVE: CASE EVENT DATE: 20240301
